FAERS Safety Report 7778420-7 (Version None)
Quarter: 2011Q3

REPORT INFORMATION
  Report Type: 
  Country: None (occurrence: None)
  Receive Date: 20110926
  Receipt Date: 20110923
  Transmission Date: 20111222
  Serious: Yes (Other)
  Sender: FDA-Public Use
  Company Number: SE-VIIV HEALTHCARE LIMITED-A0931679A

PATIENT
  Age: 27 Year
  Sex: Female

DRUGS (4)
  1. KALETRA [Suspect]
     Indication: ANTIVIRAL TREATMENT
     Route: 048
  2. COMBIVIR [Suspect]
     Indication: ANTIVIRAL TREATMENT
     Route: 048
  3. REYATAZ [Suspect]
     Indication: ANTIVIRAL TREATMENT
     Route: 048
     Dates: start: 20101217
  4. NORVIR [Suspect]
     Indication: ANTIVIRAL TREATMENT
     Route: 048

REACTIONS (4)
  - LIVE BIRTH [None]
  - BLOOD BILIRUBIN ABNORMAL [None]
  - RASH [None]
  - MATERNAL EXPOSURE DURING PREGNANCY [None]
